FAERS Safety Report 22345817 (Version 1)
Quarter: 2023Q2

REPORT INFORMATION
  Report Type: Spontaneous
  Country: US (occurrence: None)
  Receive Date: 20230519
  Receipt Date: 20230519
  Transmission Date: 20230722
  Serious: No
  Sender: FDA-Public Use
  Company Number: 2023A113227

PATIENT
  Sex: Female

DRUGS (1)
  1. FASENRA [Suspect]
     Active Substance: BENRALIZUMAB
     Dosage: 30 MG/ML EVERY 2 MONTHS30MG/ML
     Route: 058
     Dates: start: 202207

REACTIONS (4)
  - Feeling abnormal [Unknown]
  - Illness [Unknown]
  - Mite allergy [Unknown]
  - Multiple allergies [Unknown]
